FAERS Safety Report 18033221 (Version 3)
Quarter: 2021Q1

REPORT INFORMATION
  Report Type: Spontaneous
  Country: US (occurrence: US)
  Receive Date: 20200716
  Receipt Date: 20210131
  Transmission Date: 20210419
  Serious: Yes (Hospitalization, Other)
  Sender: FDA-Public Use
  Company Number: US-PURDUE-USA-2020-0155513

PATIENT
  Sex: Female

DRUGS (3)
  1. OXYCODONE HCL CR TABLETS (SIMILAR TO NDA 22?272) [Suspect]
     Active Substance: OXYCODONE HYDROCHLORIDE
     Indication: PRODUCT USED FOR UNKNOWN INDICATION
     Dosage: UNK
     Route: 048
     Dates: start: 200506
  2. OXYCONTIN [Suspect]
     Active Substance: OXYCODONE HYDROCHLORIDE
     Indication: PRODUCT USED FOR UNKNOWN INDICATION
     Dosage: UNK
     Route: 048
     Dates: start: 200506
  3. OXYCODONE HCL TABLETS (RHODES 91?490) [Suspect]
     Active Substance: OXYCODONE HYDROCHLORIDE
     Indication: PRODUCT USED FOR UNKNOWN INDICATION
     Dosage: UNK
     Route: 048

REACTIONS (14)
  - Spinal operation [Unknown]
  - Cardiac failure congestive [Unknown]
  - Drug dependence [Not Recovered/Not Resolved]
  - Loss of consciousness [Unknown]
  - Cardiac disorder [Unknown]
  - Developmental delay [Unknown]
  - Amnesia [Unknown]
  - Learning disability [Unknown]
  - Drug withdrawal syndrome [Unknown]
  - Muscle injury [Unknown]
  - Unevaluable event [Unknown]
  - Coma [Unknown]
  - Renal disorder [Unknown]
  - Nerve injury [Unknown]
